FAERS Safety Report 10038467 (Version 1)
Quarter: 2014Q1

REPORT INFORMATION
  Report Type: Spontaneous
  Country: US (occurrence: None)
  Receive Date: 20140306
  Receipt Date: 20140306
  Transmission Date: 20141002
  Serious: Yes (Other)
  Sender: FDA-Public Use
  Company Number: 163-21880-13064402

PATIENT
  Age: 82 Year
  Sex: Male

DRUGS (4)
  1. REVLIMID (LENALIDOMIDE) (25 MILLIGRAM, CAPSULES) [Suspect]
     Indication: PLASMA CELL MYELOMA
     Dosage: 25 MG, 1 IN 1 D, PO?
     Route: 048
     Dates: start: 200906
  2. DEXAMETHASONE (DEXAMETHASONE) (UNKNOWN) [Concomitant]
  3. FUROSEMIDE (FUROSEMIDE) (UNKNOWN) [Concomitant]
  4. POTASSIUM CL (POTASSIUM CHLORIDE) (UNKNOWN) [Concomitant]

REACTIONS (2)
  - Weight decreased [None]
  - Dysgeusia [None]
